FAERS Safety Report 5005980-1 (Version None)
Quarter: 2006Q1

REPORT INFORMATION
  Report Type: 
  Country: None (occurrence: None)
  Receive Date: 20060320
  Receipt Date: 20050208
  Transmission Date: 20060701
  Serious: Yes (Hospitalization, Other)
  Sender: FDA-Public Use
  Company Number: 2005-02-0430

PATIENT
  Age: 46 Year
  Sex: Male
  Weight: 97 kg

DRUGS (2)
  1. PEG-INTRON [Suspect]
     Indication: HEPATITIS C
     Dosage: 150 MCG QWK  SUBCUTANEOUS
     Route: 058
     Dates: start: 20050104, end: 20050204
  2. REBETOL [Suspect]
     Indication: HEPATITIS C
     Dosage: 1000 MG QD  ORAL
     Route: 048
     Dates: start: 20050104, end: 20050204

REACTIONS (3)
  - ANAEMIA [None]
  - RETINAL HAEMORRHAGE [None]
  - VISUAL DISTURBANCE [None]
